FAERS Safety Report 25925170 (Version 2)
Quarter: 2025Q4

REPORT INFORMATION
  Report Type: Spontaneous
  Country: EU (occurrence: EU)
  Receive Date: 20251015
  Receipt Date: 20251105
  Transmission Date: 20260117
  Serious: Yes (Hospitalization, Other)
  Sender: TEVA
  Company Number: EU-TEVA-VS-3380255

PATIENT
  Age: 16 Year
  Sex: Female

DRUGS (8)
  1. METHOTREXATE [Suspect]
     Active Substance: METHOTREXATE
     Indication: Inflammatory myofibroblastic tumour
     Route: 065
  2. CYCLOPHOSPHAMIDE [Suspect]
     Active Substance: CYCLOPHOSPHAMIDE
     Indication: Inflammatory myofibroblastic tumour
     Route: 065
     Dates: start: 2008
  3. VINORELBINE TARTRATE [Suspect]
     Active Substance: VINORELBINE TARTRATE
     Indication: Inflammatory myofibroblastic tumour
     Route: 065
  4. BRIGATINIB [Suspect]
     Active Substance: BRIGATINIB
     Indication: Inflammatory myofibroblastic tumour
     Route: 065
     Dates: start: 202208, end: 202211
  5. CRIZOTINIB [Suspect]
     Active Substance: CRIZOTINIB
     Indication: Inflammatory myofibroblastic tumour
     Route: 065
     Dates: start: 201202, end: 202108
  6. ALECTINIB [Suspect]
     Active Substance: ALECTINIB
     Indication: Inflammatory myofibroblastic tumour
     Route: 065
     Dates: start: 202108, end: 202208
  7. VINCRISTINE [Suspect]
     Active Substance: VINCRISTINE
     Indication: Inflammatory myofibroblastic tumour
     Route: 065
     Dates: start: 2008
  8. LORLATINIB [Suspect]
     Active Substance: LORLATINIB
     Indication: Inflammatory myofibroblastic tumour
     Route: 065
     Dates: start: 202301, end: 202302

REACTIONS (8)
  - Drug ineffective [Unknown]
  - Asthenia [Unknown]
  - Diarrhoea [Unknown]
  - Neutropenia [Unknown]
  - Malnutrition [Unknown]
  - Drug resistance [Unknown]
  - Cell death [Unknown]
  - Hepatic cytolysis [Unknown]
